FAERS Safety Report 10078346 (Version 1)
Quarter: 2014Q1

REPORT INFORMATION
  Report Type: Spontaneous
  Country: US (occurrence: None)
  Receive Date: 20140325
  Receipt Date: 20140325
  Transmission Date: 20141002
  Serious: Yes (Hospitalization)
  Sender: FDA-Public Use
  Company Number: 2014P1000924

PATIENT
  Sex: Female

DRUGS (2)
  1. INFUMORPH [Suspect]
     Indication: BACK PAIN
     Dates: start: 20140124
  2. INFUMORPH [Suspect]
     Indication: PAIN
     Dates: start: 20140124

REACTIONS (7)
  - Nausea [None]
  - Fatigue [None]
  - Vomiting [None]
  - Somnolence [None]
  - Mental status changes [None]
  - Incorrect dose administered [None]
  - Device malfunction [None]
